FAERS Safety Report 25675427 (Version 1)
Quarter: 2025Q3

REPORT INFORMATION
  Report Type: Spontaneous
  Country: US (occurrence: US)
  Receive Date: 20250813
  Receipt Date: 20250813
  Transmission Date: 20251021
  Serious: Yes (Death)
  Sender: GRIFOLS
  Company Number: US-IGSA-BIG0037148

PATIENT
  Age: 65 Year
  Sex: Male
  Weight: 130.2 kg

DRUGS (7)
  1. PROLASTIN-C LIQUID [Suspect]
     Active Substance: .ALPHA.1-PROTEINASE INHIBITOR HUMAN
     Indication: Alpha-1 antitrypsin deficiency
     Dosage: 1056 MILLIGRAM, Q.WK.
     Route: 042
  2. OZEMPIC [Concomitant]
     Active Substance: SEMAGLUTIDE
  3. METOPROLOL SUCCINATE [Concomitant]
     Active Substance: METOPROLOL SUCCINATE
     Dosage: 25 MILLIGRAM, QD
  4. ELIQUIS [Concomitant]
     Active Substance: APIXABAN
  5. DIPHENHYDRAMINE HYDROCHLORIDE [Concomitant]
     Active Substance: DIPHENHYDRAMINE HYDROCHLORIDE
  6. OXYGEN [Concomitant]
     Active Substance: OXYGEN
  7. XANAX [Concomitant]
     Active Substance: ALPRAZOLAM

REACTIONS (1)
  - Death [Fatal]

NARRATIVE: CASE EVENT DATE: 20250731
